FAERS Safety Report 17273050 (Version 1)
Quarter: 2020Q1

REPORT INFORMATION
  Report Type: Spontaneous
  Country: US (occurrence: US)
  Receive Date: 20191224
  Receipt Date: 20191224
  Transmission Date: 20200409
  Serious: Yes (Hospitalization)
  Sender: FDA-Public Use
  Company Number: None

PATIENT
  Age: 61 Year
  Sex: Male

DRUGS (11)
  1. AMOX/K CLAV [Concomitant]
     Active Substance: AMOXICILLIN\CLAVULANATE POTASSIUM
  2. PREDNISONE. [Concomitant]
     Active Substance: PREDNISONE
  3. NEO/POLY/HC SUS [Concomitant]
  4. CLOMIPHENE [Concomitant]
     Active Substance: CLOMIPHENE
  5. PREDNISONE. [Concomitant]
     Active Substance: PREDNISONE
  6. CARVEDILOL. [Concomitant]
     Active Substance: CARVEDILOL
  7. HYDRALAZINE [Concomitant]
     Active Substance: HYDRALAZINE HYDROCHLORIDE
  8. HUMIRA [Suspect]
     Active Substance: ADALIMUMAB
     Indication: ANKYLOSING SPONDYLITIS
     Route: 058
  9. FORTEO [Suspect]
     Active Substance: TERIPARATIDE
     Indication: GASTROINTESTINAL DISORDER
     Route: 058
  10. ALLOPURINOL TAB [Concomitant]
     Active Substance: ALLOPURINOL
  11. AMITRIPTYLIN [Concomitant]
     Active Substance: AMITRIPTYLINE

REACTIONS (2)
  - Ulcer haemorrhage [None]
  - Therapy cessation [None]

NARRATIVE: CASE EVENT DATE: 20191209
